FAERS Safety Report 7767245-4 (Version None)
Quarter: 2011Q3

REPORT INFORMATION
  Report Type: 
  Country: None (occurrence: None)
  Receive Date: 20110922
  Receipt Date: 20110413
  Transmission Date: 20111222
  Serious: No
  Sender: FDA-Public Use
  Company Number: US-ASTRAZENECA-2009SE33228

PATIENT
  Age: 515 Month
  Sex: Female
  Weight: 103.9 kg

DRUGS (8)
  1. INVEGA [Concomitant]
     Route: 048
     Dates: start: 20080317
  2. XANAX [Concomitant]
     Route: 048
     Dates: start: 20080317
  3. ZYPREXA [Concomitant]
     Indication: SCHIZOPHRENIA
     Dates: start: 20040101, end: 20060401
  4. SEROQUEL [Suspect]
     Indication: SCHIZOPHRENIA
     Route: 048
     Dates: start: 20030101
  5. GEODON [Concomitant]
     Dates: start: 20071101
  6. PHERPHENAZINE [Concomitant]
     Dates: start: 20071101
  7. ABILIFY [Concomitant]
     Dates: start: 20091001
  8. ZOLOFT [Concomitant]
     Route: 048
     Dates: start: 20080317

REACTIONS (2)
  - TYPE 2 DIABETES MELLITUS [None]
  - OBESITY [None]
